FAERS Safety Report 9410233 (Version 2)
Quarter: 2013Q3

REPORT INFORMATION
  Report Type: Spontaneous
  Country: CA (occurrence: CA)
  Receive Date: 20130719
  Receipt Date: 20130807
  Transmission Date: 20140515
  Serious: Yes (Other)
  Sender: FDA-Public Use
  Company Number: CA-BAYER-2013-085337

PATIENT
  Age: 42 Year
  Sex: Female
  Weight: 81.91 kg

DRUGS (4)
  1. MIRENA [Suspect]
     Indication: MENORRHAGIA
     Dosage: 20 MCG/24HR, CONT
     Route: 015
     Dates: start: 20130524, end: 20130711
  2. MIRENA [Suspect]
     Indication: DYSFUNCTIONAL UTERINE BLEEDING
  3. ATENOLOL [Concomitant]
     Indication: HYPERTENSION
     Dosage: 50 MG, UNK
     Route: 048
     Dates: start: 2011
  4. HYDROCHLOROTHIAZIDE [Concomitant]
     Indication: HYPERTENSION
     Dosage: 12.5 MG, UNK
     Route: 048
     Dates: start: 2012

REACTIONS (12)
  - Malaise [None]
  - Exfoliative rash [Recovered/Resolved]
  - Swelling face [Recovered/Resolved]
  - Breast pain [None]
  - Breast enlargement [Recovered/Resolved]
  - Genital haemorrhage [None]
  - Abdominal pain lower [None]
  - Abasia [None]
  - Oedema peripheral [None]
  - Pain in extremity [None]
  - Rash [Recovered/Resolved]
  - Breast swelling [Recovered/Resolved]
